FAERS Safety Report 8964179 (Version 1)
Quarter: 2012Q4

REPORT INFORMATION
  Report Type: 
  Country: US (occurrence: US)
  Receive Date: 20121213
  Receipt Date: 20121213
  Transmission Date: 20130627
  Serious: Yes (Other)
  Sender: FDA-Public Use
  Company Number: PHEH2012US024347

PATIENT
  Sex: Female
  Weight: 104.31 kg

DRUGS (5)
  1. GILENYA [Suspect]
     Indication: MULTIPLE SCLEROSIS
     Dosage: 0.5 mg, QD
     Route: 048
  2. PAXIL [Concomitant]
     Dosage: 10 mg, UNK
  3. VITAMIIN C [Concomitant]
     Dosage: 500 mg, UNK
  4. VITAMIN A [Concomitant]
     Dosage: 1000 U, UNK
  5. VITAMIN D [Concomitant]
     Dosage: 1000 U, UNK

REACTIONS (1)
  - Nephrolithiasis [Unknown]
